FAERS Safety Report 7075588-5 (Version None)
Quarter: 2010Q4

REPORT INFORMATION
  Report Type: 
  Country: None (occurrence: None)
  Receive Date: 20101030
  Receipt Date: 20100927
  Transmission Date: 20110411
  Serious: No
  Sender: FDA-Public Use
  Company Number: US-WYE-H17795910

PATIENT
  Sex: Female
  Weight: 56.75 kg

DRUGS (1)
  1. PRISTIQ [Suspect]
     Indication: DEPRESSION
     Route: 048
     Dates: start: 20100920, end: 20100924

REACTIONS (4)
  - CONSTIPATION [None]
  - INSOMNIA [None]
  - INTENTIONAL DRUG MISUSE [None]
  - THINKING ABNORMAL [None]
